FAERS Safety Report 17542883 (Version 2)
Quarter: 2020Q2

REPORT INFORMATION
  Report Type: Spontaneous
  Country: DE (occurrence: DE)
  Receive Date: 20200315
  Receipt Date: 20200610
  Transmission Date: 20200713
  Serious: Yes (Other)
  Sender: FDA-Public Use
  Company Number: DE-ROCHE-2564993

PATIENT
  Sex: Female

DRUGS (2)
  1. CAPECITABINE. [Suspect]
     Active Substance: CAPECITABINE
     Indication: BREAST CANCER
     Route: 048
     Dates: start: 201803, end: 201907
  2. DENOSUMAB [Concomitant]
     Active Substance: DENOSUMAB
     Indication: BREAST CANCER
     Dosage: UNK
     Route: 065

REACTIONS (2)
  - Metastases to pleura [Not Recovered/Not Resolved]
  - Ascites [Not Recovered/Not Resolved]

NARRATIVE: CASE EVENT DATE: 201907
